FAERS Safety Report 7186802-X (Version None)
Quarter: 2010Q4

REPORT INFORMATION
  Report Type: 
  Country: None (occurrence: None)
  Receive Date: 20101222
  Receipt Date: 20101217
  Transmission Date: 20110411
  Serious: Yes (Other)
  Sender: FDA-Public Use
  Company Number: A0900371A

PATIENT
  Age: 80 Year
  Sex: Female

DRUGS (8)
  1. TYKERB [Suspect]
     Indication: BREAST CANCER
     Dosage: 750MG PER DAY
     Route: 048
     Dates: start: 20101001, end: 20101129
  2. XELODA [Concomitant]
  3. MAGIC MOUTHWASH [Concomitant]
  4. ASPIRIN [Concomitant]
  5. PRILOSEC [Concomitant]
  6. ATENOLOL [Concomitant]
  7. ADVAIR [Concomitant]
  8. SPIRIVA [Concomitant]

REACTIONS (4)
  - ANOSMIA [None]
  - DIARRHOEA [None]
  - STOMATITIS [None]
  - TONGUE DISCOLOURATION [None]
